FAERS Safety Report 20968754 (Version 1)
Quarter: 2022Q2

REPORT INFORMATION
  Report Type: Spontaneous
  Country: US (occurrence: None)
  Receive Date: 20220616
  Receipt Date: 20220616
  Transmission Date: 20220721
  Serious: Yes (Hospitalization)
  Sender: FDA-Public Use
  Company Number: None

PATIENT
  Age: 20 Month
  Sex: Female

DRUGS (5)
  1. TOBRAMYCIN [Suspect]
     Active Substance: TOBRAMYCIN
     Indication: Cystic fibrosis
     Dosage: 5ML BID INHALATION?
     Route: 055
     Dates: start: 20220603
  2. AMOXICILLIN [Concomitant]
     Active Substance: AMOXICILLIN
  3. SULFATRIM [Concomitant]
  4. CREON [Concomitant]
     Active Substance: PANCRELIPASE AMYLASE\PANCRELIPASE LIPASE\PANCRELIPASE PROTEASE
  5. ALBUTEROL [Concomitant]
     Active Substance: ALBUTEROL

REACTIONS (6)
  - Adverse drug reaction [None]
  - Cough [None]
  - Diarrhoea [None]
  - Eye swelling [None]
  - Dyspnoea [None]
  - Drug intolerance [None]

NARRATIVE: CASE EVENT DATE: 20220609
